FAERS Safety Report 8780635 (Version 1)
Quarter: 2012Q4

REPORT INFORMATION
  Report Type: 
  Country: SG (occurrence: SG)
  Receive Date: 20120913
  Receipt Date: 20120913
  Transmission Date: 20130627
  Serious: Yes (Life-Threatening, Hospitalization, Other)
  Sender: FDA-Public Use
  Company Number: SG-ROXANE LABORATORIES, INC.-2012-RO-01825RO

PATIENT
  Sex: Male

DRUGS (1)
  1. DEXAMETHASONE [Suspect]

REACTIONS (4)
  - Cushing^s syndrome [Unknown]
  - Medication error [Unknown]
  - Drug diversion [Unknown]
  - Counterfeit drug administered [Unknown]
